FAERS Safety Report 8473670-9 (Version None)
Quarter: 2012Q2

REPORT INFORMATION
  Report Type: 
  Country: None (occurrence: None)
  Receive Date: 20120628
  Receipt Date: 20111017
  Transmission Date: 20120825
  Serious: Yes (Other)
  Sender: FDA-Public Use
  Company Number: US-MYLANLABS-2011S1017320

PATIENT
  Age: 86 Year
  Sex: Female
  Weight: 63.5 kg

DRUGS (6)
  1. LEXAPRO [Concomitant]
  2. CLOZAPINE [Suspect]
     Indication: PARANOIA
     Dates: start: 20110601, end: 20110909
  3. CANDESARTAN [Concomitant]
  4. NAMENDA [Concomitant]
  5. M.V.I. [Concomitant]
  6. ARICEPT [Concomitant]

REACTIONS (2)
  - LEUKOPENIA [None]
  - GRANULOCYTOPENIA [None]
